FAERS Safety Report 9490677 (Version 1)
Quarter: 2013Q3

REPORT INFORMATION
  Report Type: Spontaneous
  Country: GB (occurrence: GB)
  Receive Date: 20130830
  Receipt Date: 20130830
  Transmission Date: 20140515
  Serious: Yes (Hospitalization)
  Sender: FDA-Public Use
  Company Number: GB-BAYER-2013-101626

PATIENT
  Age: 30 Year
  Sex: Male

DRUGS (16)
  1. CIPROFLOXACIN [Suspect]
     Indication: INFECTION
     Dosage: 500 MG, BID
     Route: 048
     Dates: start: 20130723, end: 20130724
  2. CO-TRIMOXAZOLE [Suspect]
     Indication: INFECTION
     Dosage: 960 MG, BID
     Route: 042
     Dates: start: 20130716
  3. CO-TRIMOXAZOLE [Suspect]
     Indication: INFECTION
     Dosage: 1920 MG, BID
     Route: 042
     Dates: start: 20130724, end: 20130725
  4. CODEINE [Concomitant]
  5. DIAZEPAM [Concomitant]
  6. DOCUSATE [Concomitant]
  7. ERTAPENEM [Concomitant]
  8. IBUPROFEN [Concomitant]
  9. MORPHINE [Concomitant]
  10. NEFOPAM [Concomitant]
  11. PARACETAMOL [Concomitant]
  12. SENNA [Concomitant]
  13. SUMATRIPTAN [Concomitant]
  14. TEICOPLANIN [Concomitant]
  15. TINZAPARIN [Concomitant]
  16. TOPIRAMATE [Concomitant]

REACTIONS (8)
  - Mouth ulceration [Recovered/Resolved]
  - Rash [Unknown]
  - Pruritus [Unknown]
  - Neutropenia [Recovered/Resolved]
  - Rash papular [Unknown]
  - Rash erythematous [Recovering/Resolving]
  - Exfoliative rash [Unknown]
  - White blood cell count decreased [Unknown]
